FAERS Safety Report 23441938 (Version 1)
Quarter: 2024Q1

REPORT INFORMATION
  Report Type: Spontaneous
  Country: FR (occurrence: FR)
  Receive Date: 20240125
  Receipt Date: 20240125
  Transmission Date: 20240410
  Serious: Yes (Other)
  Sender: FDA-Public Use
  Company Number: FR-AFSSAPS-PO2024000016

PATIENT
  Age: 64 Year
  Sex: Male
  Weight: 79 kg

DRUGS (1)
  1. AZITHROMYCIN [Suspect]
     Active Substance: AZITHROMYCIN
     Indication: Superinfection bacterial
     Dosage: 1CP LE PREMIER JOUR PUIS 1/2 CP/JOUR
     Route: 048
     Dates: start: 20231220, end: 20231222

REACTIONS (5)
  - Balance disorder [Not Recovered/Not Resolved]
  - Tinnitus [Not Recovered/Not Resolved]
  - Tachycardia [Recovering/Resolving]
  - Hypertension [Recovering/Resolving]
  - Dizziness [Recovered/Resolved]

NARRATIVE: CASE EVENT DATE: 20231220
